FAERS Safety Report 10570838 (Version 1)
Quarter: 2014Q4

REPORT INFORMATION
  Report Type: Spontaneous
  Country: US (occurrence: None)
  Receive Date: 20141106
  Receipt Date: 20141106
  Transmission Date: 20150529
  Serious: Yes (Hospitalization)
  Sender: FDA-Public Use
  Company Number: None

PATIENT
  Age: 51 Year
  Sex: Male

DRUGS (14)
  1. FOLIC ACID. [Concomitant]
     Active Substance: FOLIC ACID
  2. XIFAXAN [Concomitant]
     Active Substance: RIFAXIMIN
  3. ABILIFY [Concomitant]
     Active Substance: ARIPIPRAZOLE
  4. THIAMINE [Concomitant]
     Active Substance: THIAMINE
  5. SOVALDI [Suspect]
     Active Substance: SOFOSBUVIR
     Indication: HEPATITIS C
     Route: 048
     Dates: start: 20140522
  6. REBETOL [Suspect]
     Active Substance: RIBAVIRIN
     Indication: HEPATITIS C
     Route: 048
     Dates: start: 20140522, end: 20140904
  7. ALBUMIN KUMON [Concomitant]
  8. TREMADOL [Concomitant]
  9. FUROSEMIDE. [Concomitant]
     Active Substance: FUROSEMIDE
  10. LACTULOSA [Concomitant]
  11. MAGNESIUM OXIDE. [Concomitant]
     Active Substance: MAGNESIUM OXIDE
  12. PANTOPRAZOLE [Concomitant]
     Active Substance: PANTOPRAZOLE SODIUM
  13. SPIRONOLACTONE. [Concomitant]
     Active Substance: SPIRONOLACTONE
  14. EPOETIN ALFA [Concomitant]
     Active Substance: ERYTHROPOIETIN

REACTIONS (1)
  - Anaemia of chronic disease [None]

NARRATIVE: CASE EVENT DATE: 20141008
